FAERS Safety Report 12879452 (Version 1)
Quarter: 2016Q4

REPORT INFORMATION
  Report Type: Spontaneous
  Country: FR (occurrence: FR)
  Receive Date: 20161025
  Receipt Date: 20161025
  Transmission Date: 20170207
  Serious: Yes (Hospitalization)
  Sender: FDA-Public Use
  Company Number: FR-GE HEALTHCARE MEDICAL DIAGNOSTICS-VISP-PR-1610S-0603

PATIENT
  Age: 85 Year
  Sex: Male

DRUGS (7)
  1. ATORVASTATINE [Suspect]
     Active Substance: ATORVASTATIN
     Indication: ACUTE CORONARY SYNDROME
     Route: 048
     Dates: start: 20160823, end: 20160831
  2. BISOCE [Concomitant]
     Active Substance: BISOPROLOL
     Indication: ACUTE CORONARY SYNDROME
     Route: 048
  3. VISIPAQUE [Suspect]
     Active Substance: IODIXANOL
     Indication: DIAGNOSTIC PROCEDURE
  4. VISIPAQUE [Suspect]
     Active Substance: IODIXANOL
     Indication: ELECTROCARDIOGRAM ST SEGMENT ELEVATION
     Route: 013
     Dates: start: 20160823, end: 20160823
  5. BRILIQUE [Concomitant]
     Active Substance: TICAGRELOR
     Indication: ACUTE CORONARY SYNDROME
     Route: 048
  6. VISIPAQUE [Suspect]
     Active Substance: IODIXANOL
     Indication: ACUTE CORONARY SYNDROME
  7. KARDEGIC [Concomitant]
     Active Substance: ASPIRIN LYSINE
     Indication: ACUTE CORONARY SYNDROME
     Route: 048
     Dates: start: 20160824

REACTIONS (3)
  - Pruritus [Recovered/Resolved]
  - Eosinophilia [Not Recovered/Not Resolved]
  - Rash maculo-papular [Recovering/Resolving]

NARRATIVE: CASE EVENT DATE: 20160831
